FAERS Safety Report 10592288 (Version 2)
Quarter: 2014Q4

REPORT INFORMATION
  Report Type: Spontaneous
  Country: IN (occurrence: IN)
  Receive Date: 20141119
  Receipt Date: 20141204
  Transmission Date: 20150529
  Serious: Yes (Death, Other)
  Sender: FDA-Public Use
  Company Number: IN-AUROBINDO-AUR-APL-2014-12212

PATIENT
  Age: 54 Year
  Sex: Male

DRUGS (1)
  1. METFORMIN [Suspect]
     Active Substance: METFORMIN HYDROCHLORIDE
     Indication: TYPE 2 DIABETES MELLITUS
     Dosage: UNK
     Route: 065

REACTIONS (10)
  - Blood lactate dehydrogenase increased [Unknown]
  - Jaundice [Unknown]
  - Ocular icterus [Unknown]
  - Pallor [Unknown]
  - Reticulocyte count abnormal [Unknown]
  - Haptoglobin decreased [Unknown]
  - Autoimmune haemolytic anaemia [Fatal]
  - Fatigue [Unknown]
  - Blood bilirubin increased [Unknown]
  - Haemoglobin decreased [Unknown]
